FAERS Safety Report 19246793 (Version 1)
Quarter: 2021Q2

REPORT INFORMATION
  Report Type: Report from Study
  Country: ES (occurrence: ES)
  Receive Date: 20210512
  Receipt Date: 20210512
  Transmission Date: 20210717
  Serious: Yes (Hospitalization, Other)
  Sender: FDA-Public Use
  Company Number: ES-BRISTOL-MYERS SQUIBB COMPANY-BMS-2021-045077

PATIENT
  Age: 60 Year
  Sex: Male

DRUGS (9)
  1. NIVOLUMAB [Suspect]
     Active Substance: NIVOLUMAB
     Indication: SMALL CELL LUNG CANCER EXTENSIVE STAGE
     Dosage: 480 MILLIGRAM
     Route: 041
     Dates: start: 20201022
  2. OMEPRAZOLE. [Concomitant]
     Active Substance: OMEPRAZOLE
     Indication: PROPHYLAXIS
     Dosage: 20 MILLIGRAM
     Route: 048
     Dates: start: 1857
  3. PULRODEMSTAT BESILATE. [Suspect]
     Active Substance: PULRODEMSTAT BESILATE
     Indication: SMALL CELL LUNG CANCER EXTENSIVE STAGE
     Dosage: 40 MILLIGRAM
     Route: 048
     Dates: start: 20201022
  4. LACTULOSE. [Concomitant]
     Active Substance: LACTULOSE
     Indication: PROPHYLAXIS
     Dosage: 10 MILLILITER
     Route: 048
     Dates: start: 1856
  5. FOLINIC ACID [Concomitant]
     Active Substance: LEUCOVORIN
     Indication: PROPHYLAXIS
     Dosage: 400/2 MICROGRAM
     Route: 048
     Dates: start: 1857
  6. LEVETIRACETAM. [Concomitant]
     Active Substance: LEVETIRACETAM
     Indication: PROPHYLAXIS
     Dosage: 500 MILLIGRAM
     Route: 048
     Dates: start: 1857
  7. ETOPOSIDE. [Concomitant]
     Active Substance: ETOPOSIDE
     Indication: SMALL CELL LUNG CANCER EXTENSIVE STAGE
     Dosage: UNK
     Route: 065
     Dates: start: 20200804, end: 202009
  8. CYANOCOBALAMIN. [Concomitant]
     Active Substance: CYANOCOBALAMIN
     Indication: PROPHYLAXIS
     Dosage: 400/2 UG
     Route: 048
     Dates: start: 1857
  9. CARBOPLATIN. [Concomitant]
     Active Substance: CARBOPLATIN
     Indication: SMALL CELL LUNG CANCER EXTENSIVE STAGE
     Dosage: UNK
     Route: 065
     Dates: start: 20200804, end: 202009

REACTIONS (2)
  - Nausea [Recovered/Resolved]
  - Oesophagitis [Unknown]

NARRATIVE: CASE EVENT DATE: 202104
